FAERS Safety Report 20777680 (Version 1)
Quarter: 2022Q2

REPORT INFORMATION
  Report Type: Spontaneous
  Country: US (occurrence: None)
  Receive Date: 20220503
  Receipt Date: 20220503
  Transmission Date: 20220721
  Serious: Yes (Hospitalization)
  Sender: FDA-Public Use
  Company Number: US-ROCHE-3083903

PATIENT
  Age: 56 Year
  Sex: Male
  Weight: 110.32 kg

DRUGS (1)
  1. BEVACIZUMAB [Suspect]
     Active Substance: BEVACIZUMAB
     Indication: Papilloma viral infection
     Dosage: ML ;ONGOING: NO
     Route: 042
     Dates: start: 20211116, end: 2022

REACTIONS (2)
  - Cardiac failure congestive [Not Recovered/Not Resolved]
  - Intentional product use issue [Unknown]

NARRATIVE: CASE EVENT DATE: 20211116
